FAERS Safety Report 8805501 (Version 1)
Quarter: 2012Q4

REPORT INFORMATION
  Report Type: Spontaneous
  Country: US (occurrence: None)
  Receive Date: 20120918
  Receipt Date: 20120918
  Transmission Date: 20130627
  Serious: Yes (Other)
  Sender: FDA-Public Use
  Company Number: None

PATIENT
  Age: 32 Year
  Sex: Male
  Weight: 104.33 kg

DRUGS (2)
  1. ATIVAN [Suspect]
     Indication: GENERALISED ANXIETY DISORDER
     Route: 048
     Dates: start: 20120828, end: 20120907
  2. ATIVAN [Suspect]
     Route: 048

REACTIONS (8)
  - Loss of consciousness [None]
  - Aggression [None]
  - Hand fracture [None]
  - Nightmare [None]
  - Hallucination [None]
  - Anger [None]
  - Depression [None]
  - Violence-related symptom [None]
